FAERS Safety Report 8351189-3 (Version None)
Quarter: 2012Q2

REPORT INFORMATION
  Report Type: 
  Country: None (occurrence: None)
  Receive Date: 20120510
  Receipt Date: 20120502
  Transmission Date: 20120825
  Serious: Yes (Hospitalization)
  Sender: FDA-Public Use
  Company Number: US-US-EMD SERONO, INC.-7130227

PATIENT
  Sex: Female

DRUGS (2)
  1. REBIF [Suspect]
     Indication: MULTIPLE SCLEROSIS
     Route: 058
     Dates: start: 20080625
  2. AMBIEN [Concomitant]
     Indication: PRODUCT USED FOR UNKNOWN INDICATION

REACTIONS (7)
  - FEMUR FRACTURE [None]
  - FATIGUE [None]
  - FEELING ABNORMAL [None]
  - TIBIA FRACTURE [None]
  - NEURALGIA [None]
  - ROAD TRAFFIC ACCIDENT [None]
  - MUSCULAR WEAKNESS [None]
